FAERS Safety Report 5442383-X (Version None)
Quarter: 2007Q3

REPORT INFORMATION
  Report Type: 
  Country: None (occurrence: None)
  Receive Date: 20070904
  Receipt Date: 20070828
  Transmission Date: 20080115
  Serious: Yes (Hospitalization)
  Sender: FDA-Public Use
  Company Number: US-PFIZER INC-2007067602

PATIENT
  Sex: Male
  Weight: 95.3 kg

DRUGS (1)
  1. GEODON [Suspect]
     Indication: BIPOLAR DISORDER

REACTIONS (5)
  - CHEST PAIN [None]
  - HEADACHE [None]
  - MIGRAINE [None]
  - SOMNOLENCE [None]
  - TREMOR [None]
